FAERS Safety Report 8412823-2 (Version None)
Quarter: 2012Q2

REPORT INFORMATION
  Report Type: 
  Country: None (occurrence: None)
  Receive Date: 20120605
  Receipt Date: 20120525
  Transmission Date: 20120825
  Serious: Yes (Hospitalization)
  Sender: FDA-Public Use
  Company Number: JP-VERTEX PHARMACEUTICALS INC.-AE-2012-007910

PATIENT
  Age: 73 Year
  Sex: Female

DRUGS (20)
  1. RIBAVIRIN [Concomitant]
     Indication: HEPATITIS C
     Route: 048
     Dates: start: 20120406, end: 20120409
  2. GASLON N [Concomitant]
     Route: 048
  3. CONIEL [Concomitant]
     Route: 048
  4. TELAVIC (TELAPREVIR) [Suspect]
     Route: 048
     Dates: start: 20120518
  5. NEXIUM [Concomitant]
     Route: 048
  6. TELAVIC (TELAPREVIR) [Suspect]
     Indication: HEPATITIS C
     Route: 048
     Dates: start: 20120406, end: 20120409
  7. ALLEGRA [Concomitant]
     Route: 048
     Dates: start: 20120406
  8. CONIEL [Concomitant]
     Dates: start: 20120427
  9. RIBAVIRIN [Concomitant]
     Route: 048
     Dates: start: 20120410, end: 20120413
  10. RIBAVIRIN [Concomitant]
     Route: 048
     Dates: start: 20120414
  11. AMARYL [Concomitant]
     Route: 048
  12. TELAVIC (TELAPREVIR) [Suspect]
     Route: 048
     Dates: start: 20120416, end: 20120417
  13. PEGINTERFERON ALFA-2B [Concomitant]
     Indication: HEPATITIS C
     Route: 051
     Dates: start: 20120406
  14. HIRUDOID [Concomitant]
     Route: 061
  15. CONIEL [Concomitant]
     Route: 048
     Dates: start: 20120428
  16. POTASSIUM CHLORIDE [Concomitant]
     Dates: start: 20120409
  17. TELAVIC (TELAPREVIR) [Suspect]
     Route: 048
     Dates: start: 20120414, end: 20120515
  18. TELMISARTAN [Concomitant]
     Route: 048
  19. CONIEL [Concomitant]
     Dates: start: 20120503
  20. TELAVIC (TELAPREVIR) [Suspect]
     Route: 048
     Dates: start: 20120410, end: 20120413

REACTIONS (2)
  - RENAL DISORDER [None]
  - DECREASED APPETITE [None]
